FAERS Safety Report 14226546 (Version 1)
Quarter: 2017Q4

REPORT INFORMATION
  Report Type: Spontaneous
  Country: CY (occurrence: CY)
  Receive Date: 20171127
  Receipt Date: 20171127
  Transmission Date: 20180321
  Serious: Yes (Life-Threatening, Other)
  Sender: FDA-Public Use
  Company Number: CY-GLAXOSMITHKLINE-CY2017180284

PATIENT
  Age: 75 Year
  Sex: Male

DRUGS (3)
  1. ACICLOVIR [Suspect]
     Active Substance: ACYCLOVIR
     Indication: GUILLAIN-BARRE SYNDROME
     Dosage: UNK
     Route: 065
  2. CEFTRIAXONE. [Suspect]
     Active Substance: CEFTRIAXONE
     Indication: GUILLAIN-BARRE SYNDROME
     Dosage: UNK
     Route: 042
  3. AMPICILLIN [Suspect]
     Active Substance: AMPICILLIN
     Indication: GUILLAIN-BARRE SYNDROME
     Dosage: UNK
     Route: 065

REACTIONS (1)
  - Drug ineffective [Unknown]
